FAERS Safety Report 8431090-7 (Version None)
Quarter: 2012Q2

REPORT INFORMATION
  Report Type: 
  Country: None (occurrence: None)
  Receive Date: 20120612
  Receipt Date: 20120605
  Transmission Date: 20120825
  Serious: No
  Sender: FDA-Public Use
  Company Number: US-PFIZER INC-2012087284

PATIENT
  Sex: Male
  Weight: 77.098 kg

DRUGS (5)
  1. TRIAMTERENE AND HYDROCHLOROTHIAZIDE [Concomitant]
     Indication: HYPERTENSION
     Dosage: UNK (^37.5MG^), DAILY
  2. TOVIAZ [Suspect]
     Dosage: 8 MG, DAILY
     Dates: start: 20120329
  3. TOVIAZ [Suspect]
     Indication: URINARY INCONTINENCE
     Dosage: 4 MG, DAILY
     Dates: start: 20120317, end: 20120328
  4. DIOVAN [Concomitant]
     Indication: HYPERTENSION
     Dosage: 320 MG, DAILY
  5. TERAZOSIN [Concomitant]
     Indication: HYPERTENSION
     Dosage: 5 MG, DAILY

REACTIONS (3)
  - DRUG INEFFECTIVE [None]
  - HYPERTONIC BLADDER [None]
  - URINARY INCONTINENCE [None]
